FAERS Safety Report 25056188 (Version 1)
Quarter: 2025Q1

REPORT INFORMATION
  Report Type: Report from Study
  Country: US (occurrence: US)
  Receive Date: 20250309
  Receipt Date: 20250309
  Transmission Date: 20250409
  Serious: Yes (Other)
  Sender: ABBVIE
  Company Number: US-ABBVIE-6161064

PATIENT
  Sex: Male

DRUGS (1)
  1. SKYRIZI [Suspect]
     Active Substance: RISANKIZUMAB-RZAA
     Indication: Psoriasis
     Route: 058
     Dates: start: 20190524

REACTIONS (4)
  - Systemic lupus erythematosus [Recovering/Resolving]
  - Multiple sclerosis [Recovering/Resolving]
  - Pain [Recovering/Resolving]
  - Inflammation [Unknown]
